FAERS Safety Report 5160501-8 (Version None)
Quarter: 2006Q4

REPORT INFORMATION
  Report Type: 
  Country: None (occurrence: None)
  Receive Date: 20061129
  Receipt Date: 20061116
  Transmission Date: 20070319
  Serious: Yes (Death)
  Sender: FDA-Public Use
  Company Number: ZA-BOEHRINGER INGELHEIM PHARMACEUTICALS, INC.-2006-DE-06090GD

PATIENT

DRUGS (3)
  1. TRIOMUNE [Suspect]
     Indication: HIV INFECTION
  2. TRIOMUNE [Suspect]
     Indication: KAPOSI'S SARCOMA
  3. TRIOMUNE [Suspect]
     Indication: ACQUIRED IMMUNODEFICIENCY SYNDROME

REACTIONS (2)
  - ADVERSE EVENT [None]
  - DEATH [None]
